FAERS Safety Report 6113995-5 (Version None)
Quarter: 2009Q1

REPORT INFORMATION
  Report Type: 
  Country: None (occurrence: None)
  Receive Date: 20090312
  Receipt Date: 20081016
  Transmission Date: 20090719
  Serious: No
  Sender: FDA-Public Use
  Company Number: US-ABBOTT-08P-163-0482267-00

PATIENT
  Sex: Female
  Weight: 86.26 kg

DRUGS (3)
  1. LUPRON DEPOT [Suspect]
     Indication: ENDOMETRIOSIS
     Route: 030
     Dates: start: 20081016, end: 20081016
  2. LUPRON DEPOT [Suspect]
     Indication: PELVIC PAIN
  3. LUPRON DEPOT [Suspect]
     Indication: DYSPAREUNIA

REACTIONS (3)
  - DIZZINESS [None]
  - NAUSEA [None]
  - VISION BLURRED [None]
